FAERS Safety Report 8547151-8 (Version None)
Quarter: 2012Q3

REPORT INFORMATION
  Report Type: 
  Country: None (occurrence: None)
  Receive Date: 20120727
  Receipt Date: 20120220
  Transmission Date: 20120928
  Serious: No
  Sender: FDA-Public Use
  Company Number: US-ASTRAZENECA-2012SE11941

PATIENT
  Sex: Female

DRUGS (2)
  1. SEROQUEL [Suspect]
     Route: 048
  2. PAXIL [Interacting]
     Route: 048

REACTIONS (3)
  - DRUG INTERACTION [None]
  - FLUSHING [None]
  - HYPERTENSION [None]
